FAERS Safety Report 5405963-3 (Version None)
Quarter: 2007Q3

REPORT INFORMATION
  Report Type: 
  Country: None (occurrence: None)
  Receive Date: 20070802
  Receipt Date: 20070725
  Transmission Date: 20080115
  Serious: Yes (Hospitalization)
  Sender: FDA-Public Use
  Company Number: 163-21880-07071429

PATIENT
  Age: 33 Year
  Sex: Female

DRUGS (4)
  1. REVLIMID [Suspect]
     Indication: PARAPROTEINAEMIA
     Dosage: 25 MG, 1 IN 1 D, ORAL
     Route: 048
     Dates: start: 20061016, end: 20070101
  2. PHENYTOIN [Concomitant]
  3. LEVETIRACETAM [Concomitant]
  4. WARFARIN SODIUM [Concomitant]

REACTIONS (1)
  - CONVULSION [None]
